FAERS Safety Report 4570301-5 (Version None)
Quarter: 2005Q1

REPORT INFORMATION
  Report Type: 
  Country: None (occurrence: None)
  Receive Date: 20050204
  Receipt Date: 20050124
  Transmission Date: 20050727
  Serious: Yes (Other)
  Sender: FDA-Public Use
  Company Number: GBWYE370025JAN05

PATIENT

DRUGS (3)
  1. ENBREL [Suspect]
     Indication: PSORIASIS
     Dosage: UNKNOWN
     Route: 058
     Dates: start: 20040701
  2. METHOTREXATE [Suspect]
     Indication: PSORIASIS
     Dates: start: 19950101
  3. FOLIC ACID [Concomitant]
     Dosage: UNKNOWN

REACTIONS (3)
  - BONE MARROW TOXICITY [None]
  - DRUG TOXICITY [None]
  - PANCYTOPENIA [None]
